FAERS Safety Report 7862459-7 (Version None)
Quarter: 2011Q4

REPORT INFORMATION
  Report Type: 
  Country: None (occurrence: None)
  Receive Date: 20111027
  Receipt Date: 20101102
  Transmission Date: 20120403
  Serious: No
  Sender: FDA-Public Use
  Company Number: US-AMGEN-USASP2010003506

PATIENT
  Age: 60 Year
  Sex: Female
  Weight: 113.38 kg

DRUGS (7)
  1. BUMEX [Concomitant]
     Dosage: 1 MG, UNK
  2. DILANTIN [Concomitant]
     Dosage: 100 MG, UNK
  3. SYNTHROID [Concomitant]
     Dosage: 100 A?G, UNK
  4. FOLIC ACID [Concomitant]
     Dosage: 1 MG, UNK
  5. ENBREL [Suspect]
     Indication: PRODUCT USED FOR UNKNOWN INDICATION
     Dosage: 50 MG, QWK
  6. PHENOBARB                          /00023201/ [Concomitant]
     Dosage: 100 MG, UNK
  7. VICODIN [Concomitant]
     Dosage: UNK

REACTIONS (2)
  - PAIN IN EXTREMITY [None]
  - WRONG TECHNIQUE IN DRUG USAGE PROCESS [None]
